FAERS Safety Report 5123951-1 (Version None)
Quarter: 2006Q3

REPORT INFORMATION
  Report Type: 
  Country: None (occurrence: None)
  Receive Date: 20060807
  Receipt Date: 20060608
  Transmission Date: 20061208
  Serious: Yes (Other)
  Sender: FDA-Public Use
  Company Number: WAES 0606USA01680

PATIENT
  Age: 70 Year
  Sex: Female

DRUGS (3)
  1. FOSAMAX PLUS D [Suspect]
     Indication: OSTEOPOROSIS
     Dosage: 70MG/2800 IU/WKY/PO
     Route: 048
     Dates: start: 20060605, end: 20060605
  2. DIOVAN [Concomitant]
  3. NORVASC [Concomitant]

REACTIONS (1)
  - OEDEMA PERIPHERAL [None]
